FAERS Safety Report 10277161 (Version 1)
Quarter: 2014Q3

REPORT INFORMATION
  Report Type: Spontaneous
  Country: US (occurrence: US)
  Receive Date: 20140703
  Receipt Date: 20140703
  Transmission Date: 20150326
  Serious: Yes (Other)
  Sender: FDA-Public Use
  Company Number: US-PFIZER INC-2014178580

PATIENT
  Age: 56 Year
  Sex: Female

DRUGS (1)
  1. VFEND [Suspect]
     Active Substance: VORICONAZOLE
     Indication: BRONCHOPULMONARY ASPERGILLOSIS
     Dosage: 100 MG, 2X/DAY
     Route: 048

REACTIONS (14)
  - Meniere^s disease [Unknown]
  - Renal failure acute [Unknown]
  - Trigeminal neuralgia [Unknown]
  - Balance disorder [Unknown]
  - Depression [Unknown]
  - Headache [Unknown]
  - Blood triglycerides increased [Unknown]
  - Nerve injury [Unknown]
  - Tremor [Unknown]
  - Anxiety [Unknown]
  - Hepatic cirrhosis [Unknown]
  - Deafness [Unknown]
  - Lethargy [Unknown]
  - Heart rate irregular [Unknown]

NARRATIVE: CASE EVENT DATE: 201404
